FAERS Safety Report 11637455 (Version 6)
Quarter: 2018Q1

REPORT INFORMATION
  Report Type: Spontaneous
  Country: US (occurrence: US)
  Receive Date: 20151016
  Receipt Date: 20180320
  Transmission Date: 20180508
  Serious: No
  Sender: FDA-Public Use
  Company Number: US-PFIZER INC-2015348145

PATIENT
  Age: 49 Year
  Sex: Female
  Weight: 73 kg

DRUGS (17)
  1. GENOTROPIN [Suspect]
     Active Substance: SOMATROPIN
     Dosage: 0.6 MG, BACK OF ARM AND BACK OF HER BUM CLARIFIED AS REPORTER^S BUTTOCKS, EVERY NIGHT
     Dates: start: 2015
  2. OXYCODONE [Concomitant]
     Active Substance: OXYCODONE
     Indication: NECK PAIN
  3. GENOTROPIN [Suspect]
     Active Substance: SOMATROPIN
     Indication: GROWTH HORMONE DEFICIENCY
     Dosage: 2 MG, ONCE A DAY AT NIGHT BEFORE BEDTIME
     Route: 058
     Dates: start: 20151001
  4. GENOTROPIN [Suspect]
     Active Substance: SOMATROPIN
     Dosage: 0.6 MG, UNK
  5. CLONAZEPAM. [Concomitant]
     Active Substance: CLONAZEPAM
     Indication: SLEEP DISORDER
  6. PROZAC [Concomitant]
     Active Substance: FLUOXETINE HYDROCHLORIDE
     Indication: HAEMOCHROMATOSIS
  7. PROZAC [Concomitant]
     Active Substance: FLUOXETINE HYDROCHLORIDE
     Indication: ANXIETY
  8. POTASSIUM [Concomitant]
     Active Substance: POTASSIUM
     Indication: HYPOKALAEMIA
     Dosage: 20 MG, DAILY
     Route: 048
     Dates: start: 2003
  9. OXYCODONE [Concomitant]
     Active Substance: OXYCODONE
     Indication: ARTHRALGIA
     Dosage: 15MG, EVERY 4-6 HOURS, AS NEEDED
     Route: 048
  10. SYNTHROID [Concomitant]
     Active Substance: LEVOTHYROXINE SODIUM
     Indication: HORMONE REPLACEMENT THERAPY
     Dosage: 75 ONE NIGHT, THEN 88 THE NEXT NIGHT, DAILY
     Route: 048
  11. SENNA-S [Concomitant]
     Active Substance: DOCUSATE SODIUM\SENNOSIDES
     Indication: PROPHYLAXIS
     Dosage: 2 DOSAGE FORM (DF), DAILY (EVERY NIGHT )
     Route: 048
  12. CLONAZEPAM. [Concomitant]
     Active Substance: CLONAZEPAM
     Indication: STRESS
     Dosage: 1 MG, DAILY
     Route: 048
  13. TOPIRAMATE. [Concomitant]
     Active Substance: TOPIRAMATE
     Indication: PROPHYLAXIS
     Dosage: 300 MG, DAILY (100MG IN THE MORNING, 200MG AT NIGHT)
     Route: 048
  14. ESTRADIOL. [Concomitant]
     Active Substance: ESTRADIOL
     Dosage: 1 MG, WEEKLY
     Route: 062
  15. CLONAZEPAM. [Concomitant]
     Active Substance: CLONAZEPAM
     Indication: ANXIETY
     Dosage: 2 MG, DAILY
     Route: 048
  16. GENOTROPIN [Suspect]
     Active Substance: SOMATROPIN
     Dosage: 0.8 MG, UNK
  17. PROZAC [Concomitant]
     Active Substance: FLUOXETINE HYDROCHLORIDE
     Indication: DEPRESSION
     Dosage: 40 MG, DAILY
     Route: 048

REACTIONS (17)
  - Contusion [Not Recovered/Not Resolved]
  - Pain [Unknown]
  - Pruritus [Unknown]
  - Incorrect dose administered [Unknown]
  - Injection site haemorrhage [Not Recovered/Not Resolved]
  - Influenza like illness [Unknown]
  - Injection site pain [Not Recovered/Not Resolved]
  - Crying [Not Recovered/Not Resolved]
  - Pyrexia [Unknown]
  - Umbilical hernia [Unknown]
  - Depression [Not Recovered/Not Resolved]
  - Condition aggravated [Not Recovered/Not Resolved]
  - Arthralgia [Not Recovered/Not Resolved]
  - Myalgia [Unknown]
  - Wrong technique in product usage process [Unknown]
  - Lymph node pain [Unknown]
  - Malaise [Unknown]

NARRATIVE: CASE EVENT DATE: 20151001
